FAERS Safety Report 5983969-3 (Version None)
Quarter: 2008Q4

REPORT INFORMATION
  Report Type: 
  Country: None (occurrence: None)
  Receive Date: 20081208
  Receipt Date: 20081126
  Transmission Date: 20090506
  Serious: Yes (Death, Hospitalization)
  Sender: FDA-Public Use
  Company Number: DE-ROCHE-590815

PATIENT
  Sex: Female
  Weight: 56 kg

DRUGS (4)
  1. CAPECITABINE [Suspect]
     Route: 048
     Dates: start: 20080822, end: 20080904
  2. CAPECITABINE [Suspect]
     Route: 048
     Dates: start: 20080912, end: 20080914
  3. NITRENDIPIN [Suspect]
     Indication: DRUG USE FOR UNKNOWN INDICATION
     Route: 048
  4. NIFEHEXAL [Suspect]
     Indication: DRUG USE FOR UNKNOWN INDICATION
     Dosage: DRUG NAME NIFIHEXAL COMP., DOSE 20/12.5 MG PER DAY.
     Route: 048

REACTIONS (9)
  - ANOREXIA [None]
  - CARDIOGENIC SHOCK [None]
  - DIARRHOEA [None]
  - ELECTROMECHANICAL DISSOCIATION [None]
  - GASTROINTESTINAL HAEMORRHAGE [None]
  - HAEMORRHAGE [None]
  - HYPOKALAEMIA [None]
  - NAUSEA [None]
  - TACHYARRHYTHMIA [None]
